FAERS Safety Report 4542971-9 (Version None)
Quarter: 2004Q4

REPORT INFORMATION
  Report Type: 
  Country: None (occurrence: None)
  Receive Date: 20041229
  Receipt Date: 20041123
  Transmission Date: 20050328
  Serious: Yes (Life-Threatening, Hospitalization)
  Sender: FDA-Public Use
  Company Number: F01200403741

PATIENT
  Age: 68 Year
  Sex: Male

DRUGS (5)
  1. OXALIPLATIN [Suspect]
     Indication: COLORECTAL CANCER METASTATIC
     Dosage: 243MG Q3W
     Route: 042
     Dates: start: 20041110, end: 20041110
  2. (CAPECITABINE) [Suspect]
     Dosage: 3600 MG(1000MG/M2 TWICE DAILY FROM DAY 1 TO DAY 15 Q3W)
     Dates: start: 20041110, end: 20041119
  3. (CAPECITABINE) [Suspect]
     Dosage: 3600 MG(1000MG/M2 TWICE DAILY FROM DAY 1 TO DAY 15 Q3W)
  4. ENOXAPARIN SODIUM [Concomitant]
  5. EMCONCOR     (BISOPROLOL) [Concomitant]

REACTIONS (8)
  - BRAIN OEDEMA [None]
  - CEREBRAL HAEMATOMA [None]
  - FALL [None]
  - HAEMATURIA [None]
  - HAEMOGLOBIN DECREASED [None]
  - PLATELET COUNT DECREASED [None]
  - PROTHROMBIN LEVEL DECREASED [None]
  - SYNCOPE [None]
